FAERS Safety Report 15580745 (Version 1)
Quarter: 2018Q4

REPORT INFORMATION
  Report Type: Spontaneous
  Country: US (occurrence: US)
  Receive Date: 20181104
  Receipt Date: 20181104
  Transmission Date: 20190205
  Serious: Yes (Other)
  Sender: FDA-Public Use
  Company Number: None

PATIENT
  Age: 48 Year
  Sex: Female

DRUGS (1)
  1. GABAPENTIN. [Suspect]
     Active Substance: GABAPENTIN
     Indication: MUSCLE SPASMS
     Dosage: ?          QUANTITY:1 CAPSULE(S);?
     Route: 048

REACTIONS (8)
  - Asthenia [None]
  - Muscle disorder [None]
  - Weight decreased [None]
  - Neutrophil count increased [None]
  - White blood cell count increased [None]
  - Blood creatine phosphokinase increased [None]
  - Product complaint [None]
  - Abnormal weight gain [None]

NARRATIVE: CASE EVENT DATE: 20180404
